FAERS Safety Report 5723527-9 (Version None)
Quarter: 2008Q2

REPORT INFORMATION
  Report Type: 
  Country: None (occurrence: None)
  Receive Date: 20080430
  Receipt Date: 20080416
  Transmission Date: 20081010
  Serious: Yes (Hospitalization)
  Sender: FDA-Public Use
  Company Number: A0687222A

PATIENT
  Sex: Male
  Weight: 1.2 kg

DRUGS (3)
  1. PAXIL [Suspect]
     Indication: PANIC REACTION
     Dosage: 40MG PER DAY
     Dates: start: 19951001, end: 19970901
  2. VITAMIN TAB [Concomitant]
  3. FOLIC ACID [Concomitant]

REACTIONS (7)
  - APNOEA [None]
  - ASTHMA [None]
  - BRADYCARDIA [None]
  - DRUG EXPOSURE DURING PREGNANCY [None]
  - HYPOTENSION [None]
  - PREMATURE BABY [None]
  - RESPIRATORY DISTRESS [None]
